FAERS Safety Report 8442763 (Version 2)
Quarter: 2012Q4

REPORT INFORMATION
  Report Type: 
  Country: US (occurrence: US)
  Receive Date: 20120306
  Receipt Date: 20121004
  Transmission Date: 20130627
  Serious: Yes (Death, Hospitalization, Other)
  Sender: FDA-Public Use
  Company Number: US-PFIZER INC-2012056697

PATIENT
  Age: 60 Year
  Sex: Female
  Weight: 54.42 kg

DRUGS (11)
  1. REVATIO [Suspect]
     Indication: PULMONARY HYPERTENSION
     Dosage: 20 mg, 3x/day
     Route: 048
  2. REVATIO [Suspect]
     Dosage: 20 mg, 2x/day
  3. OMEPRAZOLE [Concomitant]
     Indication: ABDOMINAL DISCOMFORT
     Dosage: 20 mg, 1x/day
  4. PREDNISONE [Concomitant]
     Indication: RENAL TRANSPLANT
     Dosage: 10 mg, 2x/day
  5. PREDNISONE [Concomitant]
     Indication: PANCREAS TRANSPLANT
  6. RAPAMUNE [Concomitant]
     Indication: PROPHYLAXIS AGAINST TRANSPLANT REJECTION
     Dosage: 2 mg, 1x/day (Daily)
  7. PENTOXIFYLLINE [Concomitant]
     Indication: ARTERIAL DISORDER
     Dosage: 400 mg, 1x/day
  8. RENVELA [Concomitant]
     Indication: DIALYSIS
     Dosage: UNK
  9. SENSIPAR [Concomitant]
     Indication: DIALYSIS
     Dosage: 30 mg, 1x/day
  10. METOPROLOL [Concomitant]
     Indication: BLOOD PRESSURE ABNORMAL
     Dosage: 75 mg, 1x/day
  11. ACETYLSALICYLIC ACID [Concomitant]
     Indication: CEREBROVASCULAR ACCIDENT PROPHYLAXIS
     Dosage: 81 mg, 1x/day

REACTIONS (9)
  - Pneumonia [Fatal]
  - Respiratory failure [Fatal]
  - Renal failure [Fatal]
  - Atrial fibrillation [Recovering/Resolving]
  - Small intestine ulcer [Unknown]
  - Urinary tract infection [Recovering/Resolving]
  - Pulmonary hypertension [Unknown]
  - Hypotension [Unknown]
  - Weight decreased [Unknown]
